FAERS Safety Report 22934302 (Version 4)
Quarter: 2024Q2

REPORT INFORMATION
  Report Type: Report from Study
  Country: PE (occurrence: PE)
  Receive Date: 20230912
  Receipt Date: 20240504
  Transmission Date: 20240716
  Serious: Yes (Death, Hospitalization, Other)
  Sender: FDA-Public Use
  Company Number: PE-002147023-NVSC2023PE191631

PATIENT
  Sex: Female

DRUGS (2)
  1. KISQALI [Suspect]
     Active Substance: RIBOCICLIB
     Indication: Breast cancer metastatic
     Dosage: 400 MG, QD (3)
     Route: 048
     Dates: start: 20230725, end: 20230903
  2. KISQALI [Suspect]
     Active Substance: RIBOCICLIB
     Dosage: 400 MG, QD (2)
     Route: 048
     Dates: start: 20230903, end: 20231112

REACTIONS (10)
  - Metastasis [Fatal]
  - Malignant neoplasm progression [Fatal]
  - Breast cancer metastatic [Unknown]
  - Respiratory disorder [Unknown]
  - Drug intolerance [Unknown]
  - Flatulence [Unknown]
  - Nausea [Unknown]
  - Fatigue [Unknown]
  - Anaemia [Unknown]
  - Asthenia [Unknown]

NARRATIVE: CASE EVENT DATE: 20230101
